FAERS Safety Report 9391374 (Version 3)
Quarter: 2013Q3

REPORT INFORMATION
  Report Type: Report from Study
  Country: US (occurrence: US)
  Receive Date: 20130709
  Receipt Date: 20130912
  Transmission Date: 20140515
  Serious: Yes (Hospitalization, Other)
  Sender: FDA-Public Use
  Company Number: US-ASTELLAS-2013US006358

PATIENT
  Age: 69 Year
  Sex: Male
  Weight: 58 kg

DRUGS (2)
  1. ERLOTINIB TABLET [Suspect]
     Indication: RENAL CELL CARCINOMA
     Dosage: 150 MG, UID/QD
     Route: 048
     Dates: start: 20130429, end: 20130610
  2. TIVANTINIB [Suspect]
     Indication: RENAL CELL CARCINOMA
     Dosage: 360 MG, BID
     Route: 048
     Dates: start: 20130429, end: 20130610

REACTIONS (10)
  - Off label use [Unknown]
  - Haemorrhage intracranial [Recovered/Resolved with Sequelae]
  - Pneumonia [Unknown]
  - Clostridium difficile infection [Unknown]
  - Performance status decreased [Unknown]
  - Pleural effusion [Unknown]
  - Ascites [Unknown]
  - Metastases to liver [Unknown]
  - Metastases to spleen [Unknown]
  - Pyrexia [Unknown]
